FAERS Safety Report 10085624 (Version 1)
Quarter: 2014Q2

REPORT INFORMATION
  Report Type: Spontaneous
  Country: IL (occurrence: IL)
  Receive Date: 20140418
  Receipt Date: 20140418
  Transmission Date: 20141212
  Serious: Yes (Hospitalization)
  Sender: FDA-Public Use
  Company Number: IL-JNJFOC-20140405135

PATIENT
  Age: 68 Year
  Sex: Female
  Weight: 57.5 kg

DRUGS (23)
  1. DOXORUBICIN HYDROCHLORIDE [Suspect]
     Indication: OVARIAN CANCER
     Dosage: 28 DAYS
     Route: 042
     Dates: start: 20140223, end: 20140223
  2. EC145 [Suspect]
     Indication: OVARIAN CANCER
     Dosage: 2.5 MG ON DAY 1, 3, 5, 15, 17, 19
     Route: 042
     Dates: start: 20140223, end: 20140227
  3. PLACEBO [Suspect]
     Indication: OVARIAN CANCER
     Dosage: 2.5 MG ON DAY 1, 3, 5, 15, 17, 19
     Route: 042
     Dates: start: 20140223, end: 20140227
  4. EC20 [Suspect]
     Indication: SINGLE PHOTON EMISSION COMPUTERISED TOMOGRAM
     Route: 042
     Dates: start: 20140218, end: 20140218
  5. FOLIC ACID [Suspect]
     Indication: SINGLE PHOTON EMISSION COMPUTERISED TOMOGRAM
     Route: 042
     Dates: start: 20140218, end: 20140218
  6. CONTROLOC [Concomitant]
     Indication: PARENTERAL NUTRITION
     Route: 065
  7. CONTROLOC [Concomitant]
     Indication: PROPHYLAXIS AGAINST GASTROINTESTINAL ULCER
     Route: 065
  8. TRAMAL [Concomitant]
     Indication: ANALGESIC THERAPY
     Route: 065
  9. POTASSIUM CHLORIDE [Concomitant]
     Indication: HYPOKALAEMIA
     Route: 065
  10. ROSUVASTATIN [Concomitant]
     Indication: HYPERLIPIDAEMIA
     Dosage: 5 MG, 1 IN 2 DAYS
     Route: 048
     Dates: start: 201312
  11. BROTIZOLAM [Concomitant]
     Indication: INSOMNIA
     Route: 048
     Dates: start: 2012
  12. CLEXANE [Concomitant]
     Indication: DEEP VEIN THROMBOSIS
     Route: 048
     Dates: start: 201310
  13. PRAMIN [Concomitant]
     Indication: PROPHYLAXIS OF NAUSEA AND VOMITING
     Route: 042
     Dates: start: 20140223
  14. DOCUSATE [Concomitant]
     Indication: CONSTIPATION
     Route: 065
     Dates: start: 20140301
  15. OPTALGIN [Concomitant]
     Indication: ANALGESIC THERAPY
     Route: 065
     Dates: start: 20140228
  16. OPTALGIN [Concomitant]
     Indication: ANALGESIC THERAPY
     Dosage: 1000-4000 MG
     Route: 065
  17. TARGIN [Concomitant]
     Indication: ANALGESIC THERAPY
     Route: 065
     Dates: start: 20140303
  18. DEXACORT [Concomitant]
     Indication: ANALGESIC THERAPY
     Route: 065
     Dates: start: 20140305
  19. SODIUM CHLORIDE [Concomitant]
     Indication: ELECTROLYTE IMBALANCE
     Route: 065
  20. PROTHIAZINE [Concomitant]
     Indication: PROPHYLAXIS
     Route: 065
  21. ZANTAC [Concomitant]
     Indication: GASTRIC ULCER
     Route: 065
  22. MAGNESIUM SULPHATE [Concomitant]
     Indication: HYPOMAGNESAEMIA
     Route: 065
  23. MORPHINE HYDROCHLORIDE [Concomitant]
     Indication: ANALGESIC THERAPY
     Route: 065

REACTIONS (4)
  - Small intestinal obstruction [Recovered/Resolved]
  - Atelectasis [Unknown]
  - Anaemia [Unknown]
  - Pleural effusion [Unknown]
